FAERS Safety Report 4932831-3 (Version None)
Quarter: 2006Q1

REPORT INFORMATION
  Report Type: 
  Country: None (occurrence: None)
  Receive Date: 20060302
  Receipt Date: 20060302
  Transmission Date: 20060701
  Serious: Yes (Other)
  Sender: FDA-Public Use
  Company Number: None

PATIENT
  Age: 48 Year
  Sex: Female
  Weight: 68.0396 kg

DRUGS (3)
  1. MS CONTIN [Suspect]
     Indication: MYOFASCIAL PAIN SYNDROME
     Dates: start: 20000201
  2. MS CONTIN [Suspect]
     Indication: NEURALGIA
     Dates: start: 20000201
  3. MS CONTIN [Suspect]
     Indication: SYSTEMIC LUPUS ERYTHEMATOSUS
     Dates: start: 20000201

REACTIONS (1)
  - PHARMACEUTICAL PRODUCT COMPLAINT [None]
